FAERS Safety Report 9710960 (Version 3)
Quarter: 2014Q2

REPORT INFORMATION
  Report Type: Spontaneous
  Country: US (occurrence: US)
  Receive Date: 20131126
  Receipt Date: 20140510
  Transmission Date: 20141212
  Serious: No
  Sender: FDA-Public Use
  Company Number: US-BRISTOL-MYERS SQUIBB COMPANY-19074616

PATIENT
  Age: 54 Year
  Sex: Female
  Weight: 98.41 kg

DRUGS (4)
  1. BYDUREON [Suspect]
     Indication: TYPE 2 DIABETES MELLITUS
     Dosage: CC:73260,EXP:FEB16?CC:73261,EXP:MAR16
     Route: 058
     Dates: start: 20130624
  2. BYETTA [Suspect]
  3. METFORMIN HCL [Suspect]
  4. GLIMEPIRIDE [Suspect]

REACTIONS (3)
  - Blood glucose increased [Not Recovered/Not Resolved]
  - Hypoglycaemia [Recovered/Resolved]
  - Injection site nodule [Not Recovered/Not Resolved]
